FAERS Safety Report 16161938 (Version 2)
Quarter: 2019Q2

REPORT INFORMATION
  Report Type: Report from Study
  Country: IT (occurrence: IT)
  Receive Date: 20190405
  Receipt Date: 20190527
  Transmission Date: 20190711
  Serious: Yes (Hospitalization, Other)
  Sender: FDA-Public Use
  Company Number: IT-ACCORD-117753

PATIENT
  Age: 48 Year
  Sex: Female

DRUGS (4)
  1. ESCITALOPRAM [Suspect]
     Active Substance: ESCITALOPRAM OXALATE
     Dosage: DATE AND TIME OF LAST ADMINISTRATION: 20-JAN-2019
     Route: 048
     Dates: start: 20190120
  2. LORAZEPAM. [Suspect]
     Active Substance: LORAZEPAM
     Dosage: DATE AND TIME OF LAST ADMINISTRATION: 20-JAN-2019
     Route: 048
     Dates: start: 20190120
  3. TRITTICO [Suspect]
     Active Substance: TRAZODONE HYDROCHLORIDE
     Dosage: DATE AND TIME OF LAST ADMINISTRATION: 20-JAN-2019
     Route: 048
     Dates: start: 20190120
  4. QUETIAPINE. [Suspect]
     Active Substance: QUETIAPINE
     Dosage: DATE AND TIME OF LAST ADMINISTRATION: 20-JAN-2019
     Route: 048
     Dates: start: 20190120

REACTIONS (3)
  - Psychomotor skills impaired [Recovered/Resolved]
  - Drug abuse [Unknown]
  - Intentional overdose [Unknown]

NARRATIVE: CASE EVENT DATE: 20190120
